FAERS Safety Report 8576245 (Version 7)
Quarter: 2013Q1

REPORT INFORMATION
  Report Type: Report from Study
  Country: NL (occurrence: NL)
  Receive Date: 20120523
  Receipt Date: 20130311
  Transmission Date: 20140127
  Serious: Yes (Life-Threatening, Hospitalization)
  Sender: FDA-Public Use
  Company Number: NL-CELGENEUS-114-20785-12051159

PATIENT
  Age: 77 Year
  Sex: Female
  Weight: 63 kg

DRUGS (10)
  1. THALIDOMIDE [Suspect]
     Indication: PLASMA CELL MYELOMA
     Route: 048
     Dates: start: 20090828, end: 20101019
  2. THALIDOMIDE [Suspect]
     Dosage: 100 MILLIGRAM
     Route: 048
     Dates: start: 20110730, end: 20120221
  3. MELPHALAN [Suspect]
     Indication: PLASMA CELL MYELOMA
     Route: 048
     Dates: start: 20110730, end: 20120114
  4. PREDNISONE [Suspect]
     Indication: PLASMA CELL MYELOMA
     Route: 048
     Dates: start: 20110730, end: 20120114
  5. DURAGESIC [Concomitant]
     Indication: PAIN
     Route: 062
     Dates: start: 201107, end: 20120221
  6. OSTAC [Concomitant]
     Indication: PRODUCT USED FOR UNKNOWN INDICATION
     Route: 048
     Dates: start: 20090812, end: 20120221
  7. OMEPRAZOLE [Concomitant]
     Indication: GASTROOESOPHAGEAL REFLUX PROPHYLAXIS
     Route: 048
     Dates: start: 20090812, end: 20120221
  8. NIFEDIPINE [Concomitant]
     Indication: PRODUCT USED FOR UNKNOWN INDICATION
     Route: 048
     Dates: start: 201103, end: 20120221
  9. PARACETAMOL [Concomitant]
     Indication: PAIN
     Route: 048
     Dates: start: 201101, end: 20120221
  10. ASCAL [Concomitant]
     Indication: PRODUCT USED FOR UNKNOWN INDICATION
     Route: 048
     Dates: start: 20110730, end: 20120221

REACTIONS (1)
  - Breast cancer [Recovered/Resolved with Sequelae]
